FAERS Safety Report 4737215-9 (Version None)
Quarter: 2005Q3

REPORT INFORMATION
  Report Type: 
  Country: None (occurrence: None)
  Receive Date: 20050808
  Receipt Date: 20050729
  Transmission Date: 20060218
  Serious: Yes (Hospitalization)
  Sender: FDA-Public Use
  Company Number: PHBS2005JP11160

PATIENT
  Age: 59 Year
  Sex: Male

DRUGS (5)
  1. DIOVAN [Suspect]
     Indication: HYPERTENSION
     Dosage: 160 MG/DAY
     Route: 048
     Dates: end: 20050616
  2. CYANOCOBALAMIN [Concomitant]
     Dosage: 1500 UG, UNK
     Route: 048
  3. URALYT [Concomitant]
     Route: 048
  4. LUPRAC [Concomitant]
     Dosage: 4 MG, UNK
     Route: 048
  5. AMLODIN [Concomitant]
     Dosage: 5 MG, UNK
     Route: 048
     Dates: start: 20050617

REACTIONS (3)
  - ASCITES [None]
  - OEDEMA PERIPHERAL [None]
  - WEIGHT INCREASED [None]
